FAERS Safety Report 19401069 (Version 1)
Quarter: 2021Q2

REPORT INFORMATION
  Report Type: Report from Study
  Country: JP (occurrence: JP)
  Receive Date: 20210610
  Receipt Date: 20210610
  Transmission Date: 20210717
  Serious: Yes (Death)
  Sender: FDA-Public Use
  Company Number: JP-GILEAD-2019-0419463

PATIENT
  Sex: Male

DRUGS (4)
  1. EMTRICITABINE/TENOFOVIR ALAFENAMIDE [Suspect]
     Active Substance: EMTRICITABINE\TENOFOVIR
     Indication: HIV INFECTION
     Dosage: 1 DOSAGE FORM, QD
     Route: 048
     Dates: start: 20210218, end: 20210319
  2. ELVITEGRAVIR/COBICISTAT/EMTRICITABINE/TENOFOVIR ALAFENAMIDE [Suspect]
     Active Substance: COBICISTAT\ELVITEGRAVIR\EMTRICITABINE\TENOFOVIR
     Indication: HIV INFECTION
     Dosage: 1 DOSAGE FORM, QD
     Route: 048
     Dates: start: 20161110, end: 20181121
  3. ODEFSEY [Suspect]
     Active Substance: EMTRICITABINE\RILPIVIRINE HYDROCHLORIDE\TENOFOVIR ALAFENAMIDE FUMARATE
     Indication: HIV INFECTION
     Dosage: 1 DOSAGE FORM
     Route: 048
     Dates: start: 20181122, end: 20210217
  4. PIFELTRO [Concomitant]
     Active Substance: DORAVIRINE
     Indication: HIV INFECTION
     Dosage: 1 DOSAGE FORM
     Dates: start: 20210218, end: 20210319

REACTIONS (2)
  - Colon cancer [Fatal]
  - Diarrhoea [Fatal]

NARRATIVE: CASE EVENT DATE: 20191219
